FAERS Safety Report 23477047 (Version 1)
Quarter: 2024Q1

REPORT INFORMATION
  Report Type: Spontaneous
  Country: AT (occurrence: AT)
  Receive Date: 20240204
  Receipt Date: 20240204
  Transmission Date: 20240409
  Serious: No
  Sender: FDA-Public Use
  Company Number: AT-EXELIXIS-CABO-23066486

PATIENT
  Age: 65 Year
  Sex: Male
  Weight: 100 kg

DRUGS (4)
  1. CABOMETYX [Suspect]
     Active Substance: CABOZANTINIB S-MALATE
     Indication: Renal cell carcinoma
     Dosage: 40 MG, QD
     Route: 065
     Dates: start: 20230426, end: 20230705
  2. NIVOLUMAB [Suspect]
     Active Substance: NIVOLUMAB
     Indication: Renal cell carcinoma
     Dosage: UNK
  3. CORTISONE [Concomitant]
     Active Substance: CORTISONE
  4. ASPIRIN [Concomitant]
     Active Substance: ASPIRIN
     Dosage: (ASA 100MG)

REACTIONS (1)
  - Impaired healing [Recovering/Resolving]
